FAERS Safety Report 6320301-X (Version None)
Quarter: 2009Q3

REPORT INFORMATION
  Report Type: 
  Country: None (occurrence: None)
  Receive Date: 20090822
  Receipt Date: 20081029
  Transmission Date: 20100115
  Serious: No
  Sender: FDA-Public Use
  Company Number: US-ABBOTT-08P-163-0484744-00

PATIENT
  Sex: Male

DRUGS (5)
  1. NIASPAN [Suspect]
     Indication: HIGH DENSITY LIPOPROTEIN
     Dates: start: 20081001
  2. ASPIRIN [Concomitant]
     Indication: DRUG USE FOR UNKNOWN INDICATION
  3. OLMESARTAN MEDOXOMIL [Concomitant]
     Indication: BLOOD PRESSURE
  4. M.V.I. [Concomitant]
     Indication: DRUG USE FOR UNKNOWN INDICATION
  5. GLUCOSAMINE W/CHONDROITIN SULFATE [Concomitant]
     Indication: DRUG USE FOR UNKNOWN INDICATION

REACTIONS (1)
  - HEADACHE [None]
